FAERS Safety Report 9770427 (Version 1)
Quarter: 2013Q4

REPORT INFORMATION
  Report Type: Spontaneous
  Country: IT (occurrence: IT)
  Receive Date: 20131218
  Receipt Date: 20131218
  Transmission Date: 20140711
  Serious: Yes (Hospitalization)
  Sender: FDA-Public Use
  Company Number: PHHY2013IT145954

PATIENT
  Age: 31 Year
  Sex: Female

DRUGS (7)
  1. TOPIRAMATE [Suspect]
     Dosage: 80 MG, QD
     Dates: start: 20131103, end: 20131103
  2. FLUOXETINE [Suspect]
     Dosage: 160 MG, QD
     Dates: start: 20131103, end: 20131128
  3. CLORAZEPATE [Suspect]
     Dosage: 8 MG, QD
     Dates: start: 20131103, end: 20131128
  4. EPHEDRINE [Suspect]
     Dosage: 160 MG, QD
     Route: 048
     Dates: start: 20131103, end: 20131128
  5. BROMELIN [Suspect]
     Dosage: 400 MG, QD
     Dates: start: 20131103, end: 20131128
  6. TIRATRICOL [Suspect]
     Dosage: 2 MG, QD4SDO
  7. SINEFRINE [Suspect]
     Dosage: 15 MG, QD4SDO

REACTIONS (5)
  - Thyroid disorder [Recovering/Resolving]
  - Apraxia [Recovering/Resolving]
  - Hypokalaemia [Recovering/Resolving]
  - Syncope [Recovering/Resolving]
  - Mydriasis [Recovering/Resolving]
